FAERS Safety Report 20890955 (Version 1)
Quarter: 2022Q2

REPORT INFORMATION
  Report Type: Report from Study
  Country: US (occurrence: US)
  Receive Date: 20220530
  Receipt Date: 20220530
  Transmission Date: 20220721
  Serious: Yes (Hospitalization, Other)
  Sender: FDA-Public Use
  Company Number: US-ASTELLAS-2022US019165

PATIENT
  Age: 66 Year
  Sex: Male

DRUGS (3)
  1. ENZALUTAMIDE [Suspect]
     Active Substance: ENZALUTAMIDE
     Indication: Prostate cancer
     Route: 048
     Dates: start: 20220305
  2. IRON [Suspect]
     Active Substance: IRON
     Indication: Anaemia
     Dosage: UNK UNK, UNKNOWN FREQ.
     Route: 065
  3. PROTONIX [Concomitant]
     Active Substance: PANTOPRAZOLE SODIUM
     Indication: Product used for unknown indication
     Dosage: UNK UNK, UNKNOWN FREQ.
     Route: 065

REACTIONS (11)
  - Prostatic specific antigen abnormal [Unknown]
  - Pneumonia [Unknown]
  - Burn oral cavity [Unknown]
  - Foreign body in throat [Unknown]
  - Retching [Unknown]
  - Sluggishness [Unknown]
  - Anaemia [Unknown]
  - Constipation [Unknown]
  - Illness [Unknown]
  - Malaise [Unknown]
  - Product use complaint [Unknown]

NARRATIVE: CASE EVENT DATE: 20220501
